FAERS Safety Report 16562505 (Version 1)
Quarter: 2019Q3

REPORT INFORMATION
  Report Type: Spontaneous
  Country: PL (occurrence: PL)
  Receive Date: 20190711
  Receipt Date: 20190711
  Transmission Date: 20191004
  Serious: Yes (Hospitalization, Other)
  Sender: FDA-Public Use
  Company Number: PL-ELI_LILLY_AND_COMPANY-PL201812007977

PATIENT
  Age: 56 Year
  Sex: Female

DRUGS (16)
  1. KETOPROFEN. [Interacting]
     Active Substance: KETOPROFEN
     Indication: PAIN
  2. SERTRALINE [Interacting]
     Active Substance: SERTRALINE HYDROCHLORIDE
     Dosage: 100 MG, DAILY
     Route: 065
  3. TRAZODONE [Suspect]
     Active Substance: TRAZODONE HYDROCHLORIDE
     Indication: INSOMNIA
     Dosage: 75 MG, BEFORE GOING TO SLEEP
     Route: 065
  4. FLUOXETINE HYDROCHLORIDE. [Suspect]
     Active Substance: FLUOXETINE HYDROCHLORIDE
     Indication: DEPRESSION
     Dosage: 40 MG, UNKNOWN
     Route: 065
  5. KETOPROFEN. [Interacting]
     Active Substance: KETOPROFEN
     Indication: INFLAMMATORY PAIN
     Dosage: 300 MG, TID
     Route: 048
  6. OMEPRAZOLE. [Suspect]
     Active Substance: OMEPRAZOLE
     Indication: SPINAL PAIN
     Dosage: 40 MG, DAILY
     Route: 065
  7. TRAMADOL. [Suspect]
     Active Substance: TRAMADOL
     Indication: ARTHRALGIA
  8. PARACETAMOL [Suspect]
     Active Substance: ACETAMINOPHEN
     Indication: PAIN
     Dosage: 2600 MG, DAILY
     Route: 065
  9. PARACETAMOL [Suspect]
     Active Substance: ACETAMINOPHEN
     Indication: ARTHRALGIA
  10. CELECOXIB. [Suspect]
     Active Substance: CELECOXIB
     Indication: BACK PAIN
     Dosage: 400 MG, DAILY
     Route: 065
  11. SERTRALINE [Interacting]
     Active Substance: SERTRALINE HYDROCHLORIDE
     Indication: DEPRESSION
     Dosage: 25 MG, UNKNOWN
     Route: 065
  12. INDAPAMIDE. [Interacting]
     Active Substance: INDAPAMIDE
     Indication: HYPERTENSION
     Dosage: 1.5 MG, DAILY
     Route: 065
  13. ENALAPRIL MALEATE. [Suspect]
     Active Substance: ENALAPRIL MALEATE
     Indication: HYPERTENSION
     Dosage: 20 MG, DAILY
     Route: 065
  14. TRAMADOL. [Suspect]
     Active Substance: TRAMADOL
     Indication: PAIN
     Dosage: 300 MG, DAILY
     Route: 065
  15. CIPROFLOXACIN. [Suspect]
     Active Substance: CIPROFLOXACIN
     Indication: BRONCHITIS
     Dosage: 500 MG, BID
     Route: 048
  16. HYDROXYZINE [Interacting]
     Active Substance: HYDROXYZINE HYDROCHLORIDE
     Indication: INITIAL INSOMNIA
     Dosage: 25 MG, IN THE EVENING
     Route: 065

REACTIONS (9)
  - Iron deficiency [Recovered/Resolved]
  - Pain [Recovered/Resolved]
  - Hypophagia [Recovered/Resolved]
  - Drug interaction [Recovered/Resolved]
  - Burning mouth syndrome [Recovered/Resolved]
  - Serotonin syndrome [Unknown]
  - Upper gastrointestinal haemorrhage [Unknown]
  - Oral discomfort [Recovered/Resolved]
  - Drug ineffective [Unknown]
